FAERS Safety Report 5109100-4 (Version None)
Quarter: 2006Q3

REPORT INFORMATION
  Report Type: 
  Country: None (occurrence: None)
  Receive Date: 20060731
  Receipt Date: 20060505
  Transmission Date: 20061208
  Serious: No
  Sender: FDA-Public Use
  Company Number: 2006PV013378

PATIENT
  Age: 58 Year
  Sex: Female
  Weight: 93.8946 kg

DRUGS (8)
  1. BYETTA [Suspect]
     Indication: DIABETES MELLITUS NON-INSULIN-DEPENDENT
     Dosage: 5 MCG;BID;SC
     Route: 058
     Dates: start: 20060417
  2. ULTRAM [Concomitant]
  3. RANITIDINE [Concomitant]
  4. NEURONTIN [Concomitant]
  5. GLUCOTROL XL [Concomitant]
  6. HEART MEDICATION [Concomitant]
  7. THYROID TAB [Concomitant]
  8. ESTROGEN REPLACEMTN [Concomitant]

REACTIONS (3)
  - NAUSEA [None]
  - WEIGHT DECREASED [None]
  - WEIGHT INCREASED [None]
